FAERS Safety Report 21325052 (Version 1)
Quarter: 2022Q3

REPORT INFORMATION
  Report Type: Spontaneous
  Country: US (occurrence: US)
  Receive Date: 20220912
  Receipt Date: 20220912
  Transmission Date: 20221027
  Serious: No
  Sender: FDA-Public Use
  Company Number: US-BAUSCHBL-2022BNL000221

PATIENT
  Age: 37 Year
  Sex: Female
  Weight: 84.898 kg

DRUGS (2)
  1. LUMIFY [Suspect]
     Active Substance: BRIMONIDINE TARTRATE
     Indication: Eye lubrication therapy
     Dosage: 1 DROP IN RIGHT EYE (RIGHT EYE BALL)
     Route: 047
     Dates: start: 202106, end: 202106
  2. LUMIFY [Suspect]
     Active Substance: BRIMONIDINE TARTRATE
     Indication: Product use in unapproved indication

REACTIONS (2)
  - Instillation site pain [Unknown]
  - Product use in unapproved indication [Unknown]
